FAERS Safety Report 6901016-3 (Version None)
Quarter: 2010Q3

REPORT INFORMATION
  Report Type: 
  Country: None (occurrence: None)
  Receive Date: 20100803
  Receipt Date: 20100802
  Transmission Date: 20110219
  Serious: Yes (Hospitalization)
  Sender: FDA-Public Use
  Company Number: A0872922A

PATIENT
  Age: 45 Year
  Sex: Female

DRUGS (3)
  1. ALLI [Suspect]
     Indication: WEIGHT LOSS DIET
     Route: 048
     Dates: end: 20100719
  2. XENICAL [Suspect]
     Dosage: 2CAP CUMULATIVE DOSE
  3. PRAVASTATIN [Concomitant]
     Indication: BLOOD CHOLESTEROL INCREASED
     Dosage: 25MG PER DAY

REACTIONS (4)
  - CHEST PAIN [None]
  - HEPATIC ENZYME INCREASED [None]
  - HEPATOMEGALY [None]
  - LIVER DISORDER [None]
